FAERS Safety Report 7717106-1 (Version None)
Quarter: 2011Q3

REPORT INFORMATION
  Report Type: 
  Country: None (occurrence: None)
  Receive Date: 20110830
  Receipt Date: 20110817
  Transmission Date: 20111222
  Serious: Yes (Hospitalization)
  Sender: FDA-Public Use
  Company Number: CH-RANBAXY-2011RR-46663

PATIENT
  Age: 64 Year
  Sex: Female

DRUGS (18)
  1. LORAZEPAM [Suspect]
  2. MIRTAZAPINE [Concomitant]
     Dosage: 60 MG, UNK
     Route: 065
  3. LORAZEPAM [Suspect]
     Indication: PROPHYLAXIS AGAINST ALCOHOLIC WITHDRAWAL SYNDROME
     Dosage: 5-10 MG DAILY
     Route: 065
  4. LEVOTHYROXINE SODIUM [Concomitant]
     Indication: HYPOTHYROIDISM
     Route: 065
  5. METOPROLOL [Concomitant]
     Indication: HYPERTENSION
     Route: 065
  6. VENLAFAXINE HYDROCHLORIDE [Concomitant]
     Indication: PRODUCT USED FOR UNKNOWN INDICATION
     Dosage: 450 MG DAILY
     Route: 065
  7. ATORVASTATIN [Concomitant]
     Indication: HYPERLIPIDAEMIA
     Route: 065
  8. SALICYLATE [Concomitant]
     Indication: PROPHYLAXIS
     Route: 065
  9. VENLAFAXINE HYDROCHLORIDE [Concomitant]
     Dosage: 150 MG, UNK
     Route: 065
  10. DYDROGESTERONE TAB [Concomitant]
     Indication: HORMONE REPLACEMENT THERAPY
     Dosage: 5 MG, UNK
     Route: 065
  11. 17-BETA-ESTRADIOL [Concomitant]
     Indication: HORMONE REPLACEMENT THERAPY
     Dosage: 1 MG, UNK
     Route: 065
  12. MIRTAZAPINE [Concomitant]
     Indication: PRODUCT USED FOR UNKNOWN INDICATION
     Dosage: 75 MG DAILY
     Route: 065
  13. LORAZEPAM [Suspect]
     Indication: PROPHYLAXIS
  14. LORAZEPAM [Suspect]
     Dosage: 3 MG, UNK
     Route: 065
  15. LISINOPRIL [Concomitant]
     Indication: HYPERTENSION
     Route: 065
  16. PANTOPRAZOLE [Concomitant]
     Indication: GASTROOESOPHAGEAL REFLUX DISEASE
     Route: 065
  17. MIANSERIN [Concomitant]
     Indication: MAJOR DEPRESSION
     Dosage: 60 MG, UNK
     Route: 065
  18. FELODIPINE [Concomitant]
     Indication: HYPERTENSION
     Route: 065

REACTIONS (2)
  - WITHDRAWAL SYNDROME [None]
  - DELIRIUM [None]
